FAERS Safety Report 9760462 (Version 2)
Quarter: 2014Q1

REPORT INFORMATION
  Report Type: Spontaneous
  Country: FR (occurrence: FR)
  Receive Date: 20131216
  Receipt Date: 20140108
  Transmission Date: 20141002
  Serious: Yes (Death, Life-Threatening, Other)
  Sender: FDA-Public Use
  Company Number: FR-BRISTOL-MYERS SQUIBB COMPANY-19888593

PATIENT
  Age: 70 Year
  Sex: Male
  Weight: 87 kg

DRUGS (7)
  1. YERVOY [Suspect]
     Indication: METASTATIC MALIGNANT MELANOMA
     Dosage: THIRD INJECTION -13NOV13
     Route: 042
     Dates: start: 20131001
  2. KETOPROFEN [Concomitant]
     Indication: PAIN
     Route: 048
     Dates: start: 20131113
  3. TRAMADOL [Concomitant]
     Dates: start: 20131113
  4. INEXIUM [Concomitant]
     Dates: start: 20131113
  5. LYRICA [Concomitant]
     Dosage: REINTRODUCED ON 13-NOV-2013
     Dates: start: 20131001
  6. IMOVANE [Concomitant]
     Indication: INSOMNIA
     Dosage: 1DF=3.15 UNITS NOS
     Route: 048
  7. MOTILIUM [Concomitant]
     Indication: NAUSEA
     Dosage: 1DF=2 TABS

REACTIONS (4)
  - Death [Fatal]
  - Renal failure [Unknown]
  - Hepatocellular injury [Unknown]
  - Dermatitis [Unknown]
